FAERS Safety Report 14721282 (Version 1)
Quarter: 2018Q2

REPORT INFORMATION
  Report Type: Spontaneous
  Country: ES (occurrence: ES)
  Receive Date: 20180405
  Receipt Date: 20180405
  Transmission Date: 20180711
  Serious: Yes (Other)
  Sender: FDA-Public Use
  Company Number: ES-TEVA-2018-ES-876191

PATIENT
  Age: 28 Year
  Sex: Female
  Weight: 53 kg

DRUGS (3)
  1. CLARITROMICINA MYLAN 500 MG COMPRESSED FILMS WITH FILM EFG, 14 TABLETS [Suspect]
     Active Substance: CLARITHROMYCIN
     Indication: HELICOBACTER INFECTION
     Dosage: 500MG EVERY 12 HOURS FOR 3 DAYS
     Route: 048
  2. AMOXICILLIN (108A) [Suspect]
     Active Substance: AMOXICILLIN
     Indication: HELICOBACTER INFECTION
     Route: 065
  3. OMEPRAZOLE (2141A) [Suspect]
     Active Substance: OMEPRAZOLE SODIUM
     Indication: HELICOBACTER INFECTION
     Route: 065

REACTIONS (6)
  - Anxiety [Unknown]
  - Feeling hot [Unknown]
  - Paraesthesia [Unknown]
  - Ageusia [Unknown]
  - Flatulence [Unknown]
  - Affect lability [Unknown]
